FAERS Safety Report 6676219-6 (Version None)
Quarter: 2010Q2

REPORT INFORMATION
  Report Type: 
  Country: None (occurrence: None)
  Receive Date: 20100412
  Receipt Date: 20100402
  Transmission Date: 20101027
  Serious: Yes (Other)
  Sender: FDA-Public Use
  Company Number: US-JNJFOC-20091204789

PATIENT
  Sex: Female
  Weight: 72.58 kg

DRUGS (4)
  1. DURAGESIC-100 [Suspect]
     Indication: PAIN
     Route: 062
  2. DURAGESIC-100 [Suspect]
     Route: 062
  3. HYDROCODONE BITARTRATE [Concomitant]
     Indication: BREAKTHROUGH PAIN
     Route: 048
  4. UNKNOWN MEDICATION [Concomitant]
     Indication: HYPERTENSION
     Route: 048

REACTIONS (5)
  - ANXIETY [None]
  - BLOOD TRIGLYCERIDES INCREASED [None]
  - PANIC ATTACK [None]
  - PRODUCT QUALITY ISSUE [None]
  - THERAPEUTIC RESPONSE DECREASED [None]
